FAERS Safety Report 5832306-3 (Version None)
Quarter: 2008Q3

REPORT INFORMATION
  Report Type: 
  Country: None (occurrence: None)
  Receive Date: 20080804
  Receipt Date: 20080723
  Transmission Date: 20090109
  Serious: Yes (Other)
  Sender: FDA-Public Use
  Company Number: B0361407A

PATIENT
  Age: 50 Year
  Sex: Female

DRUGS (11)
  1. SEROXAT [Suspect]
     Indication: PANIC ATTACK
     Route: 065
     Dates: start: 19940915
  2. CHLORPROMAZINE [Concomitant]
  3. THIORIDAZINE HCL [Concomitant]
     Indication: ANXIETY
  4. HRT [Concomitant]
     Route: 065
  5. AMITRIPTYLINE HYDROCHLORIDE [Concomitant]
     Dates: start: 20060214
  6. PROTHIADEN [Concomitant]
     Dates: start: 19980612
  7. CIPRAMIL [Concomitant]
     Dates: start: 20050623
  8. DIAZEPAM [Concomitant]
     Dates: start: 19960213
  9. EFFEXOR [Concomitant]
     Dates: start: 20030617
  10. METFORMIN HCL [Concomitant]
     Dates: start: 20040101
  11. HYDROXYCOBALAMIN [Concomitant]
     Dates: start: 19960101

REACTIONS (15)
  - AGGRESSION [None]
  - AGITATION [None]
  - ANGER [None]
  - DIZZINESS [None]
  - DRUG DEPENDENCE [None]
  - DRUG WITHDRAWAL SYNDROME [None]
  - FATIGUE [None]
  - FLUSHING [None]
  - HYPERHIDROSIS [None]
  - LIBIDO DECREASED [None]
  - MALAISE [None]
  - PRURITUS GENERALISED [None]
  - TINNITUS [None]
  - VISUAL IMPAIRMENT [None]
  - VOMITING [None]
